FAERS Safety Report 14103926 (Version 2)
Quarter: 2017Q4

REPORT INFORMATION
  Report Type: Report from Study
  Country: CO (occurrence: CO)
  Receive Date: 20171018
  Receipt Date: 20171103
  Transmission Date: 20180321
  Serious: Yes (Hospitalization, Other)
  Sender: FDA-Public Use
  Company Number: PHHY2017CO133561

PATIENT
  Age: 35 Year
  Sex: Male
  Weight: 88 kg

DRUGS (10)
  1. REVOLADE [Suspect]
     Active Substance: ELTROMBOPAG
     Indication: THROMBOCYTOPENIC PURPURA
     Dosage: 25 MG, BID (AT NIGHT)
     Route: 048
     Dates: start: 20170901, end: 20170909
  2. SALINE [Concomitant]
     Active Substance: SODIUM CHLORIDE
     Indication: PAIN IN JAW
  3. SALINE [Concomitant]
     Active Substance: SODIUM CHLORIDE
     Indication: BACK PAIN
     Dosage: UNK
     Route: 005
  4. BUSCAPINA [Concomitant]
     Active Substance: BUTYLSCOPOLAMINE BROMIDE
     Indication: ABDOMINAL PAIN
  5. BUSCAPINA [Concomitant]
     Active Substance: BUTYLSCOPOLAMINE BROMIDE
     Indication: NECK PAIN
  6. BUSCAPINA [Concomitant]
     Active Substance: BUTYLSCOPOLAMINE BROMIDE
     Indication: BACK PAIN
  7. ACETAMINOPHEN. [Concomitant]
     Active Substance: ACETAMINOPHEN
     Indication: ABDOMINAL PAIN
     Dosage: UNK
     Route: 065
  8. SALINE [Concomitant]
     Active Substance: SODIUM CHLORIDE
     Indication: NECK PAIN
  9. SALINE [Concomitant]
     Active Substance: SODIUM CHLORIDE
     Indication: ABDOMINAL PAIN
  10. BUSCAPINA [Concomitant]
     Active Substance: BUTYLSCOPOLAMINE BROMIDE
     Indication: PAIN IN JAW
     Dosage: UNK
     Route: 065

REACTIONS (8)
  - Pain in jaw [Unknown]
  - Arthralgia [Unknown]
  - Platelet count decreased [Unknown]
  - Abdominal pain [Unknown]
  - Back pain [Unknown]
  - Burning sensation [Unknown]
  - Neck pain [Unknown]
  - Insomnia [Unknown]

NARRATIVE: CASE EVENT DATE: 20170905
